FAERS Safety Report 7396240-2 (Version None)
Quarter: 2011Q2

REPORT INFORMATION
  Report Type: 
  Country: None (occurrence: None)
  Receive Date: 20110406
  Receipt Date: 20110322
  Transmission Date: 20111010
  Serious: Yes (Other)
  Sender: FDA-Public Use
  Company Number: US-JNJFOC-20110310699

PATIENT
  Sex: Female
  Weight: 99.79 kg

DRUGS (8)
  1. FENTANYL [Suspect]
     Indication: PAIN
     Route: 062
  2. LYRICA [Concomitant]
     Indication: HYPOAESTHESIA
     Route: 048
  3. LYRICA [Concomitant]
     Indication: ARTHRALGIA
     Route: 048
  4. LYRICA [Concomitant]
     Indication: BACK PAIN
     Route: 048
  5. DURAGESIC [Suspect]
     Indication: PAIN
     Route: 062
  6. LOSARTAN POTASSIUM [Concomitant]
     Indication: HYPERTENSION
     Route: 048
  7. MELOXICAM [Concomitant]
     Indication: ARTHRITIS
     Route: 048
  8. DURAGESIC [Suspect]
     Route: 062

REACTIONS (9)
  - WRONG TECHNIQUE IN DRUG USAGE PROCESS [None]
  - CYSTOCELE [None]
  - BACK PAIN [None]
  - PAIN [None]
  - INAPPROPRIATE SCHEDULE OF DRUG ADMINISTRATION [None]
  - PRODUCT QUALITY ISSUE [None]
  - PAIN IN EXTREMITY [None]
  - ARTHRALGIA [None]
  - HYPOAESTHESIA [None]
